FAERS Safety Report 7692977-6 (Version None)
Quarter: 2011Q3

REPORT INFORMATION
  Report Type: 
  Country: None (occurrence: None)
  Receive Date: 20110819
  Receipt Date: 20110811
  Transmission Date: 20111222
  Serious: Yes (Hospitalization, Other)
  Sender: FDA-Public Use
  Company Number: MX-NOVOPROD-333576

PATIENT

DRUGS (1)
  1. VICTOZA [Suspect]
     Indication: DIABETES MELLITUS
     Dosage: 0.6 MG, QD
     Dates: start: 20110810

REACTIONS (4)
  - LOSS OF CONSCIOUSNESS [None]
  - PHARYNGITIS [None]
  - VOMITING [None]
  - URINARY TRACT INFECTION [None]
